FAERS Safety Report 7224358-3 (Version None)
Quarter: 2011Q1

REPORT INFORMATION
  Report Type: 
  Country: None (occurrence: None)
  Receive Date: 20110113
  Receipt Date: 20110107
  Transmission Date: 20110831
  Serious: Yes (Other)
  Sender: FDA-Public Use
  Company Number: US-BAXTER-2010BH022660

PATIENT
  Age: 70 Year
  Sex: Male

DRUGS (6)
  1. GAMMAGARD LIQUID [Suspect]
     Indication: PRIMARY IMMUNODEFICIENCY SYNDROME
     Route: 042
     Dates: start: 20100101, end: 20100101
  2. SOLU-MEDROL [Concomitant]
     Indication: PREMEDICATION
     Route: 042
  3. GAMMAGARD LIQUID [Suspect]
     Indication: IMMUNODEFICIENCY COMMON VARIABLE
     Route: 042
     Dates: start: 20100101, end: 20100101
  4. GAMMAGARD LIQUID [Suspect]
     Route: 065
     Dates: start: 20100701
  5. GAMMAGARD LIQUID [Suspect]
     Route: 065
     Dates: start: 20100701
  6. DIPHENHYDRAMINE [Concomitant]
     Indication: PREMEDICATION
     Route: 042

REACTIONS (9)
  - TREMOR [None]
  - RASH [None]
  - BLISTER [None]
  - URTICARIA [None]
  - HEADACHE [None]
  - NAUSEA [None]
  - SKIN EXFOLIATION [None]
  - FATIGUE [None]
  - PRURITUS [None]
